FAERS Safety Report 18914869 (Version 2)
Quarter: 2021Q1

REPORT INFORMATION
  Report Type: Spontaneous
  Country: US (occurrence: US)
  Receive Date: 20210219
  Receipt Date: 20210311
  Transmission Date: 20210420
  Serious: No
  Sender: FDA-Public Use
  Company Number: US-GLAXOSMITHKLINE-US2021034665

PATIENT
  Age: 61 Year
  Sex: Female

DRUGS (2)
  1. RYTHMOL SR [Suspect]
     Active Substance: PROPAFENONE HYDROCHLORIDE
     Indication: ARRHYTHMIA
     Dosage: 225 MG, Z(TWICE DAILY OR EVERY 12 HOURS)
     Dates: start: 20160601
  2. PROPAFENONE HYDROCHLORIDE SR [Suspect]
     Active Substance: PROPAFENONE HYDROCHLORIDE
     Indication: PRODUCT USED FOR UNKNOWN INDICATION
     Dosage: UNK

REACTIONS (3)
  - Drug ineffective [Unknown]
  - Heart rate abnormal [Unknown]
  - Tachycardia [Unknown]

NARRATIVE: CASE EVENT DATE: 20160601
